FAERS Safety Report 8339739-4 (Version None)
Quarter: 2012Q2

REPORT INFORMATION
  Report Type: 
  Country: None (occurrence: None)
  Receive Date: 20120507
  Receipt Date: 20120424
  Transmission Date: 20120825
  Serious: Yes (Other)
  Sender: FDA-Public Use
  Company Number: TW-CELGENEUS-153-21880-12022911

PATIENT
  Sex: Male
  Weight: 56.3 kg

DRUGS (79)
  1. HEPARIN SODIUM [Concomitant]
     Dosage: 500U/5ML
     Route: 041
  2. TRAMADOL HYDROCHLORIDE [Concomitant]
     Dosage: 50 MILLIGRAM
     Route: 048
     Dates: start: 20120120, end: 20120120
  3. SODIUM CHLORIDE [Concomitant]
     Dosage: 250 MILLILITER
     Route: 041
     Dates: start: 20120210, end: 20120211
  4. DEFENSE [Concomitant]
     Dosage: 300
     Route: 048
     Dates: start: 20120122, end: 20120123
  5. EVAC ENEMA [Concomitant]
     Dosage: 118ML
     Route: 054
     Dates: start: 20120203, end: 20120204
  6. DEXTROSE 5% [Concomitant]
     Dosage: 500 MILLILITER
     Route: 041
     Dates: start: 20120208, end: 20120209
  7. ALLEGRA [Concomitant]
     Dosage: 120 MILLIGRAM
     Route: 048
     Dates: start: 20120227
  8. SANDIMMUNE [Concomitant]
     Dosage: 50 MILLILITER
     Route: 048
  9. HEPARIN SODIUM [Concomitant]
     Dosage: 500U/5ML
     Route: 041
  10. ALLERMIN [Concomitant]
     Dosage: 5MG/ML
     Route: 041
     Dates: start: 20120131, end: 20120201
  11. ALLERMIN [Concomitant]
     Dosage: 5MG/ML
     Route: 041
     Dates: start: 20120210, end: 20120211
  12. ALLERMIN [Concomitant]
     Dosage: 5MG/ML
     Route: 041
     Dates: start: 20120221, end: 20120222
  13. SODIUM CHLORIDE [Concomitant]
     Dosage: 500 MILLILITER
     Route: 041
     Dates: start: 20120121, end: 20120122
  14. CEFMETAZOLE [Concomitant]
     Dosage: 2000 MILLIGRAM
     Route: 041
     Dates: start: 20120227
  15. DEFENSE [Concomitant]
     Dosage: 2.25 MILLIGRAM
     Route: 041
  16. ULTRACET [Concomitant]
     Dosage: 2.25 MILLIGRAM
     Route: 041
  17. KLEAN PREP [Concomitant]
     Dosage: X2
     Route: 065
     Dates: start: 20120201, end: 20120202
  18. SOD BICARBONATE [Concomitant]
     Dosage: 4.5
     Route: 041
     Dates: start: 20120208, end: 20120209
  19. DEMEROL [Concomitant]
     Dosage: 50 MILLIGRAM
     Route: 041
     Dates: start: 20120211, end: 20120212
  20. LACTATED RINGER'S [Concomitant]
     Route: 041
     Dates: start: 20120211, end: 20120212
  21. TRANDATE [Concomitant]
     Dosage: 5MG/0.5
     Route: 041
     Dates: start: 20120214, end: 20120215
  22. GENESAFE [Concomitant]
     Dosage: 600 MILLIGRAM
     Route: 048
  23. ALLERMIN [Concomitant]
     Dosage: 5MG/ML
     Route: 041
     Dates: start: 20120203, end: 20120204
  24. ALLERMIN [Concomitant]
     Dosage: 5MG/ML
     Route: 041
     Dates: start: 20120211, end: 20120212
  25. SODIUM CHLORIDE [Concomitant]
     Dosage: 250 MILLILITER
     Route: 041
     Dates: start: 20120203, end: 20120204
  26. SODIUM CHLORIDE [Concomitant]
     Dosage: 500 MILLILITER
     Route: 041
     Dates: start: 20120117, end: 20120117
  27. LASIX [Concomitant]
     Dosage: 20MG/2ML
     Route: 041
     Dates: start: 20120207, end: 20120208
  28. BISOPROLOL FUMARATE [Concomitant]
     Route: 048
     Dates: start: 20120227
  29. PRIMPERAN TAB [Concomitant]
     Dosage: 15 MILLIGRAM
     Route: 048
  30. PRIMPERAN TAB [Concomitant]
     Dosage: 10 MILLIGRAM
     Route: 041
     Dates: start: 20120121, end: 20120125
  31. DEMEROL [Concomitant]
     Dosage: 50 MILLIGRAM
     Route: 041
     Dates: start: 20120221, end: 20120222
  32. MIZOLLEN [Concomitant]
     Dosage: 10 MILLIGRAM
     Route: 048
  33. TRAMADOL HYDROCHLORIDE [Concomitant]
     Dosage: 1
     Route: 041
     Dates: start: 20120203, end: 20120204
  34. SODIUM CHLORIDE [Concomitant]
     Dosage: 500 MILLILITER
     Route: 041
     Dates: start: 20120131, end: 20120201
  35. SODIUM CHLORIDE [Concomitant]
     Dosage: 250 MILLILITER
     Route: 041
     Dates: start: 20120206, end: 20120207
  36. SODIUM CHLORIDE [Concomitant]
     Dosage: 250
     Route: 041
     Dates: start: 20120220, end: 20120221
  37. SODIUM CHLORIDE [Concomitant]
     Dosage: 500 MILLILITER
     Route: 041
     Dates: start: 20120221
  38. PIPERACILLIN AND TAZOBACTAM [Concomitant]
     Dosage: 2.25 MILLIGRAM
     Route: 041
     Dates: start: 20120120, end: 20120121
  39. CALGLON [Concomitant]
     Dosage: 10 MILLILITER
     Route: 041
     Dates: start: 20120131, end: 20120201
  40. LASIX [Concomitant]
     Dosage: 20MG/ML
     Route: 041
     Dates: start: 20120131, end: 20120201
  41. BISOPROLOL FUMARATE [Concomitant]
     Dosage: .5 TABLET
     Route: 048
  42. MORPHINE [Concomitant]
     Dosage: 3 MILLIGRAM
     Route: 041
     Dates: start: 20120211, end: 20120212
  43. RINGER'S SOLUTION [Concomitant]
     Dosage: 500
     Route: 041
     Dates: start: 20120211, end: 20120212
  44. ATIVAN [Concomitant]
     Dosage: .5 MILLIGRAM
     Route: 048
     Dates: start: 20120220, end: 20120221
  45. BACIDE [Concomitant]
     Dosage: 800 MILLIGRAM
     Route: 048
  46. ALLERMIN [Concomitant]
     Dosage: 5MG/ML
     Route: 041
     Dates: start: 20120121, end: 20120122
  47. SODIUM CHLORIDE [Concomitant]
     Dosage: 250 MILLILITER
     Route: 041
     Dates: start: 20120211, end: 20120212
  48. SODIUM CHLORIDE [Concomitant]
     Dosage: 500 MILLILITER
     Route: 041
     Dates: start: 20120224
  49. NORVASC [Concomitant]
     Dosage: 10 MILLIGRAM
     Route: 048
     Dates: start: 20120215, end: 20120229
  50. NEOMYCIN SULFATE TAB [Concomitant]
     Route: 065
     Dates: start: 20120224
  51. CALAMINE [Concomitant]
     Dosage: 100 MILLILITER
     Route: 061
     Dates: start: 20120214, end: 20120229
  52. ULTRACET [Concomitant]
     Dosage: 1 TABLET
     Route: 048
     Dates: start: 20120128, end: 20120129
  53. ACETYLCYSTEINE A [Concomitant]
     Dosage: 2
     Route: 048
     Dates: start: 20120209, end: 20120210
  54. S-60 [Concomitant]
     Dosage: 1000 MILLIGRAM
     Route: 041
     Dates: start: 20120210, end: 20120211
  55. TAITA NO. 3 [Concomitant]
     Dosage: 500
     Route: 041
     Dates: start: 20120211, end: 20120212
  56. NICARDIPINE HCL [Concomitant]
     Dosage: 10 MILLIGRAM
     Route: 041
     Dates: start: 20120211, end: 20120212
  57. TRAMADOL HYDROCHLORIDE [Concomitant]
     Dosage: 100 MILLIGRAM
     Route: 048
  58. ALLERMIN [Concomitant]
     Dosage: 5MG/ML
     Route: 041
     Dates: start: 20120206, end: 20120207
  59. ALLERMIN [Concomitant]
     Dosage: 5MG/ML
     Route: 041
     Dates: start: 20120227, end: 20120228
  60. SODIUM CHLORIDE [Concomitant]
     Dosage: 500 MILLILITER
     Route: 041
     Dates: start: 20120223
  61. PIPERACILLIN AND TAZOBACTAM [Concomitant]
     Dosage: 2.25 MILLIGRAM
     Route: 041
     Dates: start: 20120120, end: 20120203
  62. MYDOCALM [Concomitant]
     Dosage: 150 MILLIGRAM
     Route: 048
     Dates: start: 20120128, end: 20120129
  63. METRONIDAZOLE [Concomitant]
     Dosage: 500 MILLIGRAM
     Route: 041
     Dates: start: 20120210, end: 20120211
  64. ALLERMIN [Concomitant]
     Dosage: 5MG/ML
     Route: 041
  65. ECONAZOLE NITRATE [Concomitant]
     Route: 061
     Dates: start: 20120225
  66. MYDOCALM [Concomitant]
     Dosage: 2.25 MILLIGRAM
     Route: 041
  67. CALGLON [Concomitant]
     Dosage: 2.25 MILLIGRAM
     Route: 041
  68. LASIX [Concomitant]
     Dosage: 20MG/2ML
     Route: 041
     Dates: start: 20120221, end: 20120222
  69. DEXTROSE 5% [Concomitant]
     Dosage: 500 MILLILITER
     Route: 041
     Dates: start: 20120210, end: 20120211
  70. TRANDATE [Concomitant]
     Dosage: 5MG/0.5
     Route: 041
     Dates: start: 20120213, end: 20120214
  71. STROCAIN [Concomitant]
     Route: 048
  72. REVLIMID [Suspect]
     Indication: MULTIPLE MYELOMA
     Dosage: 15 MILLIGRAM
     Route: 048
     Dates: start: 20110614, end: 20111010
  73. TRAMADOL HYDROCHLORIDE [Concomitant]
     Dosage: .5
     Route: 041
     Dates: start: 20120211, end: 20120212
  74. TRAMADOL HYDROCHLORIDE [Concomitant]
     Dosage: 1
     Route: 041
     Dates: start: 20120222
  75. TRAMADOL HYDROCHLORIDE [Concomitant]
     Dosage: 1
     Route: 048
     Dates: start: 20120225
  76. SODIUM CHLORIDE [Concomitant]
     Dosage: 500 MILLILITER
     Route: 041
     Dates: start: 20120211, end: 20120212
  77. RINDERON-V [Concomitant]
     Route: 061
     Dates: start: 20120227
  78. DEMEROL [Concomitant]
     Dosage: 50 MILLIGRAM
     Route: 041
     Dates: start: 20120211, end: 20120212
  79. MGO [Concomitant]
     Dosage: 250 MILLIGRAM
     Route: 048
     Dates: start: 20120120, end: 20120123

REACTIONS (1)
  - COLON CANCER STAGE III [None]
